FAERS Safety Report 7360938-2 (Version None)
Quarter: 2011Q1

REPORT INFORMATION
  Report Type: 
  Country: None (occurrence: None)
  Receive Date: 20110318
  Receipt Date: 20110314
  Transmission Date: 20110831
  Serious: Yes (Other)
  Sender: FDA-Public Use
  Company Number: BE-ELI_LILLY_AND_COMPANY-BE201101002648

PATIENT

DRUGS (4)
  1. CORTICOSTEROIDS [Concomitant]
  2. GEMCITABINE HYDROCHLORIDE [Suspect]
     Indication: TRANSITIONAL CELL CARCINOMA
     Dosage: 1000 MG/M2, ON DAY1 AND 8 OF 21DAY CYCLE
  3. CARBOPLATIN [Concomitant]
     Dosage: UNK, DAY1 OF 21DAY CYCLE
  4. DOPAMINE [Concomitant]

REACTIONS (2)
  - TUBULOINTERSTITIAL NEPHRITIS [None]
  - HYPERSENSITIVITY [None]
